FAERS Safety Report 17371153 (Version 1)
Quarter: 2020Q1

REPORT INFORMATION
  Report Type: Spontaneous
  Country: MT (occurrence: MT)
  Receive Date: 20200205
  Receipt Date: 20200205
  Transmission Date: 20200409
  Serious: Yes (Other)
  Sender: FDA-Public Use
  Company Number: MT-ANIPHARMA-2020-MT-000001

PATIENT
  Age: 82 Year
  Sex: Female

DRUGS (3)
  1. ARIMIDEX [Suspect]
     Active Substance: ANASTROZOLE
     Indication: BREAST CANCER
     Dosage: UNK
     Route: 048
  2. TAMOXIFEN [Suspect]
     Active Substance: TAMOXIFEN
     Dosage: NON-AZ PRODUCT / UNK
     Route: 048
  3. NOLVADEX D [Suspect]
     Active Substance: TAMOXIFEN CITRATE
     Dosage: UNK
     Route: 048

REACTIONS (7)
  - Fall [Unknown]
  - Bone disorder [Unknown]
  - Anxiety [Unknown]
  - Breast cancer recurrent [Unknown]
  - Hand fracture [Unknown]
  - Spinal fracture [Unknown]
  - Upper limb fracture [Unknown]
